FAERS Safety Report 5072811-3 (Version None)
Quarter: 2006Q3

REPORT INFORMATION
  Report Type: 
  Country: None (occurrence: None)
  Receive Date: 20060802
  Receipt Date: 20060720
  Transmission Date: 20061208
  Serious: Yes (Other)
  Sender: FDA-Public Use
  Company Number: GXKR2006FR04290

PATIENT
  Age: 20 Year
  Sex: Female

DRUGS (3)
  1. PREDNISONE [Suspect]
     Indication: IMMUNOSUPPRESSION
  2. AZATHIOPRINE [Suspect]
     Indication: IMMUNOSUPPRESSION
  3. TACROLIMUS                (TACROLIMUS) [Suspect]
     Indication: IMMUNOSUPPRESSION

REACTIONS (1)
  - CLEAR CELL CARCINOMA OF THE KIDNEY [None]
